FAERS Safety Report 9422233 (Version 1)
Quarter: 2013Q3

REPORT INFORMATION
  Report Type: Spontaneous
  Country: US (occurrence: None)
  Receive Date: 20130725
  Receipt Date: 20130725
  Transmission Date: 20140515
  Serious: Yes (Hospitalization)
  Sender: FDA-Public Use
  Company Number: None

PATIENT
  Age: 70 Year
  Sex: Female
  Weight: 67.2 kg

DRUGS (7)
  1. XARELTO [Suspect]
     Indication: ATRIAL FIBRILLATION
     Route: 048
     Dates: start: 20130215, end: 20130717
  2. SOTOLOL [Concomitant]
  3. AMLODIPINE [Concomitant]
  4. DIGOXIN [Concomitant]
  5. CAPTOPRIL [Concomitant]
  6. FLEXERIL [Concomitant]
  7. MEDROL [Concomitant]

REACTIONS (3)
  - Headache [None]
  - Confusional state [None]
  - Subdural haematoma [None]
